FAERS Safety Report 21142643 (Version 3)
Quarter: 2022Q3

REPORT INFORMATION
  Report Type: Spontaneous
  Country: FR (occurrence: None)
  Receive Date: 20220728
  Receipt Date: 20220730
  Transmission Date: 20221027
  Serious: Yes (Other)
  Sender: FDA-Public Use
  Company Number: 2022A066536

PATIENT
  Age: 65 Year
  Sex: Male
  Weight: 62 kg

DRUGS (7)
  1. DAPAGLIFLOZIN [Suspect]
     Active Substance: DAPAGLIFLOZIN
     Indication: Diabetes mellitus
     Route: 048
     Dates: start: 20220117, end: 20220120
  2. DAPAGLIFLOZIN [Suspect]
     Active Substance: DAPAGLIFLOZIN
     Indication: Cardiac failure
     Route: 048
     Dates: start: 20220117, end: 20220120
  3. BISOPROLOL [Concomitant]
     Active Substance: BISOPROLOL
     Indication: Stent placement
     Dosage: 1.25MG UNKNOWN
     Route: 065
     Dates: start: 2020
  4. CANDESARTAN CILEXETIL\HYDROCHLOROTHIAZIDE [Concomitant]
     Active Substance: CANDESARTAN CILEXETIL\HYDROCHLOROTHIAZIDE
     Indication: Hypertension
     Dosage: 16/12.5 MG
     Route: 065
     Dates: start: 2010
  5. METFORMIN PAMOATE [Concomitant]
     Active Substance: METFORMIN PAMOATE
     Indication: Diabetes mellitus
     Dosage: 700
     Route: 065
     Dates: start: 2017
  6. ASPIRIN [Concomitant]
     Active Substance: ASPIRIN
     Indication: Stent placement
     Dosage: 100.0MG UNKNOWN
     Route: 065
     Dates: start: 2012
  7. CRESTOR [Concomitant]
     Active Substance: ROSUVASTATIN CALCIUM
     Indication: Stent placement
     Dosage: 5.0MG UNKNOWN
     Route: 065
     Dates: start: 2012

REACTIONS (8)
  - Malaise [Recovered/Resolved]
  - Loss of consciousness [Recovered/Resolved]
  - Syncope [Recovered/Resolved]
  - Fall [Recovered/Resolved]
  - Asthenia [Recovered/Resolved]
  - Headache [Recovered/Resolved]
  - Balance disorder [Recovered/Resolved]
  - Hypotension [Recovered/Resolved]

NARRATIVE: CASE EVENT DATE: 20220117
